FAERS Safety Report 5143846-7 (Version None)
Quarter: 2006Q4

REPORT INFORMATION
  Report Type: 
  Country: None (occurrence: None)
  Receive Date: 20061106
  Receipt Date: 20061026
  Transmission Date: 20070319
  Serious: Yes (Hospitalization, Other)
  Sender: FDA-Public Use
  Company Number: PHEH2006US13403

PATIENT
  Age: 55 Year
  Sex: Male

DRUGS (1)
  1. CLOZARIL [Suspect]
     Dates: start: 19980101

REACTIONS (3)
  - DYSPHAGIA [None]
  - GASTROINTESTINAL TUBE INSERTION [None]
  - PNEUMONIA ASPIRATION [None]
